FAERS Safety Report 9074240 (Version 1)
Quarter: 2013Q1

REPORT INFORMATION
  Report Type: Report from Study
  Country: US (occurrence: US)
  Receive Date: 20130129
  Receipt Date: 20130129
  Transmission Date: 20140127
  Serious: No
  Sender: FDA-Public Use
  Company Number: US-ABBOTT-12P-163-0919262-00

PATIENT
  Age: 50 Year
  Sex: Female

DRUGS (5)
  1. HUMIRA 40 MG/0.8 ML PEN [Suspect]
     Indication: ANKYLOSING SPONDYLITIS
     Dates: start: 201009
  2. AMITIZA [Concomitant]
     Indication: CONSTIPATION
  3. PROMETRIUM [Concomitant]
     Indication: HORMONE REPLACEMENT THERAPY
     Dosage: AT BED TIME
  4. ESTERIFIED [Concomitant]
     Indication: HORMONE REPLACEMENT THERAPY
     Dosage: IN THE MORNING
  5. RESTORIL [Concomitant]
     Indication: INSOMNIA
     Dosage: AT BED TIME

REACTIONS (3)
  - Arthralgia [Not Recovered/Not Resolved]
  - Oropharyngeal pain [Not Recovered/Not Resolved]
  - Cough [Not Recovered/Not Resolved]
